FAERS Safety Report 12489850 (Version 2)
Quarter: 2016Q4

REPORT INFORMATION
  Report Type: Spontaneous
  Country: IT (occurrence: IT)
  Receive Date: 20160622
  Receipt Date: 20161227
  Transmission Date: 20170207
  Serious: Yes (Other)
  Sender: FDA-Public Use
  Company Number: IT-JNJFOC-20160614677

PATIENT

DRUGS (3)
  1. OLYSIO [Suspect]
     Active Substance: SIMEPREVIR
     Indication: HEPATITIS C
     Dosage: 12 WEEKS
     Route: 065
  2. RIBAVIRIN. [Suspect]
     Active Substance: RIBAVIRIN
     Indication: HEPATITIS C
     Dosage: 12 WEEKS
     Route: 065
  3. SOFOSBUVIR [Suspect]
     Active Substance: SOFOSBUVIR
     Indication: HEPATITIS C
     Dosage: 12 WEEKS
     Route: 065

REACTIONS (7)
  - Cryoglobulinaemia [Unknown]
  - Hypertension [Unknown]
  - Hypercholesterolaemia [Unknown]
  - Diabetes mellitus [Unknown]
  - Hepatocellular carcinoma [Unknown]
  - Remission not achieved [Unknown]
  - Anaemia [Unknown]
